FAERS Safety Report 10944942 (Version 1)
Quarter: 2015Q1

REPORT INFORMATION
  Report Type: Spontaneous
  Country: CA (occurrence: CA)
  Receive Date: 20150323
  Receipt Date: 20150323
  Transmission Date: 20150721
  Serious: Yes (Hospitalization, Congenital Anomaly, Other)
  Sender: FDA-Public Use
  Company Number: CA-JNJFOC-20150307641

PATIENT
  Sex: Male

DRUGS (1)
  1. BONAMINE [Suspect]
     Active Substance: MECLIZINE HYDROCHLORIDE
     Indication: VOMITING IN PREGNANCY
     Route: 064

REACTIONS (3)
  - Cardiac disorder [Recovered/Resolved]
  - Foetal exposure during pregnancy [Unknown]
  - Cardiac murmur [Recovered/Resolved]
